FAERS Safety Report 9056615 (Version 2)
Quarter: 2013Q3

REPORT INFORMATION
  Report Type: Spontaneous
  Country: JP (occurrence: JP)
  Receive Date: 20130204
  Receipt Date: 20130821
  Transmission Date: 20140515
  Serious: Yes (Other)
  Sender: FDA-Public Use
  Company Number: PHHY2013JP008437

PATIENT
  Age: 66 Year
  Sex: Male

DRUGS (3)
  1. GLYCERYL TRINITRATE [Suspect]
     Indication: PRINZMETAL ANGINA
     Dosage: 25 MG,DAILY (BEFORE SLEEP)
     Route: 062
  2. AMLODIPINE [Suspect]
     Indication: PRINZMETAL ANGINA
     Dosage: 2.5 MG, DAILY
  3. NICORANDIL [Suspect]
     Indication: PRINZMETAL ANGINA
     Dosage: 5 MG, TID

REACTIONS (6)
  - Cardio-respiratory arrest [Unknown]
  - Ventricular fibrillation [Unknown]
  - Fall [Unknown]
  - Electrocardiogram ST segment elevation [Unknown]
  - Cold sweat [Unknown]
  - Dizziness [Unknown]
